FAERS Safety Report 17784035 (Version 1)
Quarter: 2020Q2

REPORT INFORMATION
  Report Type: Spontaneous
  Country: US (occurrence: US)
  Receive Date: 20200513
  Receipt Date: 20200513
  Transmission Date: 20200714
  Serious: Yes (Life-Threatening)
  Sender: FDA-Public Use
  Company Number: None

PATIENT
  Age: 31 Year
  Sex: Male
  Weight: 83.01 kg

DRUGS (2)
  1. MIRTAZPINE (MIRTAZAPINE 15MG TAB) [Suspect]
     Active Substance: MIRTAZAPINE
     Indication: INSOMNIA
     Dosage: ?          OTHER FREQUENCY:AT BEDTIME;?
     Dates: start: 20180501, end: 20180531
  2. MIRTAZPINE (MIRTAZAPINE 15MG TAB) [Suspect]
     Active Substance: MIRTAZAPINE
     Indication: DEPRESSION
     Dosage: ?          OTHER FREQUENCY:AT BEDTIME;?
     Dates: start: 20180501, end: 20180531

REACTIONS (4)
  - Aspartate aminotransferase increased [None]
  - Hepatic enzyme increased [None]
  - Alanine aminotransferase increased [None]
  - Blood alkaline phosphatase increased [None]

NARRATIVE: CASE EVENT DATE: 20180531
